FAERS Safety Report 19931364 (Version 1)
Quarter: 2021Q4

REPORT INFORMATION
  Report Type: Report from Study
  Country: FR (occurrence: FR)
  Receive Date: 20211007
  Receipt Date: 20211007
  Transmission Date: 20220303
  Serious: Yes (Other)
  Sender: FDA-Public Use
  Company Number: FR-GILEAD-2021-0534676

PATIENT
  Age: 65 Year
  Sex: Male

DRUGS (6)
  1. TENOFOVIR DISOPROXIL [Suspect]
     Active Substance: TENOFOVIR DISOPROXIL
     Indication: HIV infection
     Dosage: UNK
     Route: 065
     Dates: start: 20020701, end: 20060601
  2. KALETRA [Concomitant]
     Active Substance: LOPINAVIR\RITONAVIR
     Dosage: UNK
     Dates: start: 20000801, end: 20060601
  3. EPIVIR [Concomitant]
     Active Substance: LAMIVUDINE
     Dosage: UNK
     Dates: start: 20020201, end: 20050601
  4. HIVID [Concomitant]
     Active Substance: ZALCITABINE
     Dosage: UNK
     Dates: start: 20020201, end: 20050601
  5. SUSTIVA [Concomitant]
     Active Substance: EFAVIRENZ
     Dosage: UNK
     Dates: start: 20020701, end: 20060601
  6. COMBIVIR [Concomitant]
     Active Substance: LAMIVUDINE\ZIDOVUDINE
     Dosage: UNK
     Dates: start: 20050601, end: 20060601

REACTIONS (2)
  - Virologic failure [Unknown]
  - Drug resistance [Unknown]

NARRATIVE: CASE EVENT DATE: 20050101
